FAERS Safety Report 9348365 (Version 2)
Quarter: 2013Q3

REPORT INFORMATION
  Report Type: Not Available
  Country: SE (occurrence: SE)
  Receive Date: 20130614
  Receipt Date: 20130711
  Transmission Date: 20140515
  Serious: Yes (Hospitalization)
  Sender: FDA-Public Use
  Company Number: SE-NAPPMUNDI-GBR-2013-0014514

PATIENT
  Sex: Female

DRUGS (2)
  1. OXYCONTIN DEPOTTABLETIT [Suspect]
     Indication: PAIN
     Route: 048
  2. WARAN [Suspect]
     Indication: PRODUCT USED FOR UNKNOWN INDICATION

REACTIONS (1)
  - Prothrombin level decreased [Unknown]
